FAERS Safety Report 6504913-6 (Version None)
Quarter: 2009Q4

REPORT INFORMATION
  Report Type: 
  Country: None (occurrence: None)
  Receive Date: 20091218
  Receipt Date: 20091209
  Transmission Date: 20100525
  Serious: Yes (Other)
  Sender: FDA-Public Use
  Company Number: GB-ROCHE-673724

PATIENT
  Age: 4 Year
  Sex: Male

DRUGS (1)
  1. TAMIFLU [Suspect]
     Indication: H1N1 INFLUENZA
     Route: 065
     Dates: start: 20090801

REACTIONS (7)
  - CONFUSIONAL STATE [None]
  - COUGH [None]
  - DISCOMFORT [None]
  - DISORIENTATION [None]
  - EMOTIONAL DISTRESS [None]
  - HALLUCINATION [None]
  - IRRITABILITY [None]
